FAERS Safety Report 5368627-0 (Version None)
Quarter: 2007Q2

REPORT INFORMATION
  Report Type: 
  Country: None (occurrence: None)
  Receive Date: 20070621
  Receipt Date: 20070621
  Transmission Date: 20071010
  Serious: Yes (Death, Hospitalization)
  Sender: FDA-Public Use
  Company Number: None

PATIENT
  Age: 86 Year
  Sex: Male
  Weight: 63.5036 kg

DRUGS (1)
  1. ATROPINE [Suspect]
     Dosage: ADULT 2X
     Dates: start: 20050910, end: 20050910

REACTIONS (3)
  - BEDRIDDEN [None]
  - CARDIOPULMONARY FAILURE [None]
  - PNEUMONIA [None]
